FAERS Safety Report 18382114 (Version 1)
Quarter: 2020Q4

REPORT INFORMATION
  Report Type: Spontaneous
  Country: SG (occurrence: SG)
  Receive Date: 20201003
  Receipt Date: 20201003
  Transmission Date: 20210114
  Serious: Yes (Disabling)
  Sender: FDA-Public Use
  Company Number: None

PATIENT
  Age: 44 Year
  Sex: Female
  Weight: 55 kg

DRUGS (5)
  1. INVEGA [Suspect]
     Active Substance: PALIPERIDONE
     Indication: NONINFECTIVE GINGIVITIS
  2. PARACIL [Concomitant]
  3. ANTIHISTAMINES [Concomitant]
     Active Substance: ANTIHISTAMINES NOS
  4. ANTI-ALLERGY CREAM [Concomitant]
  5. FOLATE ACID [Suspect]
     Active Substance: FOLIC ACID
     Indication: DRY EYE
     Dosage: ?          QUANTITY:100 DF DOSAGE FORM;?
     Route: 048
     Dates: start: 20200826, end: 20200826

REACTIONS (1)
  - Arthralgia [None]

NARRATIVE: CASE EVENT DATE: 20200901
